FAERS Safety Report 7238129-5 (Version None)
Quarter: 2011Q1

REPORT INFORMATION
  Report Type: 
  Country: None (occurrence: None)
  Receive Date: 20110121
  Receipt Date: 20110114
  Transmission Date: 20110831
  Serious: Yes (Hospitalization, Other)
  Sender: FDA-Public Use
  Company Number: CHPA2011US00770

PATIENT
  Age: 32 Year
  Sex: Female

DRUGS (2)
  1. THERAFLU NIGHTTIME SEVERE COLD + COUGH [Suspect]
     Dosage: 1 DF, ONCE/SINGLE
     Route: 048
     Dates: start: 20110109, end: 20110109
  2. THERAFLU NIGHTTIME SEVERE COLD + COUGH [Suspect]
     Indication: COUGH
     Dosage: UNK DF, UNK
     Route: 048
     Dates: start: 20100101, end: 20100101

REACTIONS (5)
  - PYREXIA [None]
  - COELIAC DISEASE [None]
  - VOMITING [None]
  - RETCHING [None]
  - MALAISE [None]
